FAERS Safety Report 7400029 (Version 3)
Quarter: 2018Q1

REPORT INFORMATION
  Report Type: Report from Study
  Country: DE (occurrence: DE)
  Receive Date: 20100526
  Receipt Date: 20180301
  Transmission Date: 20180509
  Serious: Yes (Hospitalization)
  Sender: FDA-Public Use
  Company Number: DE-ROCHE-705045

PATIENT
  Age: 75 Year
  Sex: Female
  Weight: 59.4 kg

DRUGS (12)
  1. PACLITAXEL. [Concomitant]
     Active Substance: PACLITAXEL
     Route: 042
  2. PACLITAXEL. [Concomitant]
     Active Substance: PACLITAXEL
     Route: 042
  3. PACLITAXEL. [Concomitant]
     Active Substance: PACLITAXEL
     Route: 042
  4. PACLITAXEL. [Concomitant]
     Active Substance: PACLITAXEL
     Route: 042
  5. AMPHO-MORONAL [Concomitant]
     Active Substance: AMPHOTERICIN B
     Route: 065
     Dates: start: 20100301, end: 20100303
  6. PACLITAXEL. [Concomitant]
     Active Substance: PACLITAXEL
     Indication: BREAST CANCER METASTATIC
     Route: 042
  7. PACLITAXEL. [Concomitant]
     Active Substance: PACLITAXEL
     Route: 042
  8. BEVACIZUMAB. [Suspect]
     Active Substance: BEVACIZUMAB
     Indication: BREAST CANCER METASTATIC
     Route: 042
  9. PACLITAXEL. [Concomitant]
     Active Substance: PACLITAXEL
     Route: 042
  10. BEVACIZUMAB. [Suspect]
     Active Substance: BEVACIZUMAB
     Route: 042
  11. PACLITAXEL. [Concomitant]
     Active Substance: PACLITAXEL
     Route: 042
  12. PACLITAXEL. [Concomitant]
     Active Substance: PACLITAXEL
     Route: 042

REACTIONS (2)
  - Oesophageal candidiasis [Recovered/Resolved]
  - Candida infection [Recovered/Resolved]

NARRATIVE: CASE EVENT DATE: 20100301
